FAERS Safety Report 8282236-5 (Version None)
Quarter: 2012Q2

REPORT INFORMATION
  Report Type: 
  Country: None (occurrence: None)
  Receive Date: 20120413
  Receipt Date: 20120403
  Transmission Date: 20120825
  Serious: Yes (Death, Life-Threatening, Hospitalization, Other)
  Sender: FDA-Public Use
  Company Number: MX-SANOFI-AVENTIS-2012SA018195

PATIENT
  Age: 59 Year
  Sex: Male
  Weight: 80 kg

DRUGS (24)
  1. HORMONES AND RELATED AGENTS [Concomitant]
     Indication: PROSTATE CANCER
     Route: 042
     Dates: start: 20060101
  2. VORICONAZOLE [Concomitant]
     Indication: URINARY TRACT INFECTION
     Route: 042
     Dates: start: 20111001
  3. TAXOTERE [Suspect]
     Route: 042
     Dates: start: 20110912, end: 20110912
  4. LEUPROLIDE ACETATE [Concomitant]
     Indication: PROSTATE CANCER
     Dosage: EVERY 3 MONTHS.
     Route: 058
     Dates: start: 20060101
  5. VORICONAZOLE [Concomitant]
     Route: 042
     Dates: start: 20111001
  6. ENOXAPARIN SODIUM [Suspect]
     Indication: THROMBOSIS
     Route: 058
     Dates: start: 20110721, end: 20111014
  7. CORTICOSTEROIDS [Concomitant]
     Route: 065
     Dates: start: 20100101
  8. ANTIBIOTICS [Concomitant]
     Route: 042
     Dates: start: 20111002
  9. TAXOTERE [Suspect]
     Route: 042
     Dates: start: 20110822, end: 20110822
  10. TAXOTERE [Suspect]
     Route: 042
     Dates: start: 20110926, end: 20110926
  11. ZOLEDRONOC ACID [Concomitant]
     Route: 042
     Dates: start: 20100101
  12. TAXOTERE [Suspect]
     Route: 042
     Dates: start: 20110919, end: 20110919
  13. ENOXAPARIN SODIUM [Suspect]
     Route: 058
     Dates: start: 20111014, end: 20111113
  14. CASODEX [Concomitant]
     Indication: PROSTATE CANCER
     Route: 048
     Dates: start: 20060101
  15. KETOCONAZOLE [Concomitant]
     Route: 065
     Dates: start: 20100101
  16. CEFEPIME [Concomitant]
     Route: 042
     Dates: start: 20111002
  17. CEFEPIME [Concomitant]
     Indication: URINARY TRACT INFECTION
     Route: 042
     Dates: start: 20111002
  18. ANTIBIOTICS [Concomitant]
     Indication: URINARY TRACT INFECTION
     Route: 042
     Dates: start: 20111002
  19. FLUCONAZOLE [Concomitant]
     Indication: URINARY TRACT INFECTION
     Route: 042
     Dates: start: 20111002
  20. TAXOTERE [Suspect]
     Indication: PROSTATE CANCER
     Route: 042
     Dates: start: 20110815, end: 20110815
  21. TAXOTERE [Suspect]
     Route: 042
     Dates: start: 20110829, end: 20110829
  22. CORTICOSTEROID NOS [Concomitant]
     Indication: URINARY TRACT INFECTION
     Route: 042
     Dates: start: 20111001
  23. FLUCONAZOLE [Concomitant]
     Route: 042
     Dates: start: 20111002
  24. CORTICOSTEROID NOS [Concomitant]
     Route: 042
     Dates: start: 20111001

REACTIONS (20)
  - PNEUMONIA PRIMARY ATYPICAL [None]
  - PNEUMONITIS [None]
  - PYREXIA [None]
  - PSYCHOMOTOR HYPERACTIVITY [None]
  - DYSURIA [None]
  - DIARRHOEA HAEMORRHAGIC [None]
  - DRUG TOLERANCE DECREASED [None]
  - PNEUMOCONIOSIS [None]
  - EMPHYSEMA [None]
  - RESPIRATORY FAILURE [None]
  - DYSPNOEA [None]
  - DEATH [None]
  - ARTHRALGIA [None]
  - HAEMOPTYSIS [None]
  - THROMBOSIS [None]
  - INTERSTITIAL LUNG DISEASE [None]
  - PNEUMOTHORAX [None]
  - RESPIRATORY ALKALOSIS [None]
  - MYALGIA [None]
  - URINARY TRACT INFECTION [None]
